FAERS Safety Report 7925101-2 (Version None)
Quarter: 2011Q4

REPORT INFORMATION
  Report Type: 
  Country: None (occurrence: None)
  Receive Date: 20111118
  Receipt Date: 20110401
  Transmission Date: 20120403
  Serious: No
  Sender: FDA-Public Use
  Company Number: US-AMGEN-USASP2011017482

PATIENT
  Age: 49 Year
  Sex: Male
  Weight: 93.878 kg

DRUGS (2)
  1. METHOTREXATE [Concomitant]
     Dosage: 2.5 MG, UNK
  2. ENBREL [Suspect]
     Indication: PRODUCT USED FOR UNKNOWN INDICATION
     Dosage: 50 MG, QWK

REACTIONS (1)
  - GINGIVAL INFECTION [None]
